FAERS Safety Report 8895852 (Version 1)
Quarter: 2012Q4

REPORT INFORMATION
  Report Type: 
  Country: JP (occurrence: JP)
  Receive Date: 20121108
  Receipt Date: 20121108
  Transmission Date: 20130627
  Serious: Yes (Other)
  Sender: FDA-Public Use
  Company Number: PHHY2012JP101861

PATIENT
  Age: 66 Year
  Sex: Male

DRUGS (8)
  1. AMIODARONE [Suspect]
     Indication: ATRIAL FIBRILLATION
     Dosage: 200 mg, per day
  2. AMIODARONE [Interacting]
     Dosage: 100 mg, per day
  3. CARVEDILOL [Interacting]
     Indication: ATRIAL FIBRILLATION
     Dosage: 2.5 mg, per day
  4. DIGOXIN [Interacting]
     Dosage: 0.1 mg, per day
  5. FUROSEMIDE [Concomitant]
     Dosage: 120 mg, per day
  6. SPIRONOLACTONE [Concomitant]
     Dosage: 25 mg, per day
  7. POTASSIUM ASPARTATE [Concomitant]
     Dosage: 900 mg, per day
  8. WARFARIN [Concomitant]
     Dosage: 1.5 mg, per day

REACTIONS (6)
  - Torsade de pointes [Recovered/Resolved]
  - Syncope [Unknown]
  - Electrocardiogram QT prolonged [Recovered/Resolved]
  - Atrioventricular block [Recovered/Resolved]
  - Bradycardia [Recovered/Resolved]
  - Drug interaction [Unknown]
